FAERS Safety Report 6358702-6 (Version None)
Quarter: 2009Q3

REPORT INFORMATION
  Report Type: 
  Country: None (occurrence: None)
  Receive Date: 20090916
  Receipt Date: 20090623
  Transmission Date: 20100115
  Serious: No
  Sender: FDA-Public Use
  Company Number: US-ABBOTT-09P-163-0581464-00

PATIENT
  Sex: Male

DRUGS (6)
  1. TRILIPIX [Suspect]
     Indication: HYPERTRIGLYCERIDAEMIA
     Route: 048
     Dates: start: 20090601, end: 20090612
  2. TRILIPIX [Suspect]
     Indication: HYPERCHOLESTEROLAEMIA
  3. TOPROL-XL [Concomitant]
     Indication: DRUG USE FOR UNKNOWN INDICATION
  4. LEXAPRO [Concomitant]
     Indication: DRUG USE FOR UNKNOWN INDICATION
  5. ZOCOR [Concomitant]
     Indication: DRUG USE FOR UNKNOWN INDICATION
  6. HYDROCHLOROTHIAZIDE [Concomitant]
     Indication: DRUG USE FOR UNKNOWN INDICATION

REACTIONS (2)
  - VISION BLURRED [None]
  - VISUAL ACUITY REDUCED [None]
